FAERS Safety Report 9018340 (Version 1)
Quarter: 2013Q1

REPORT INFORMATION
  Report Type: Spontaneous
  Country: US (occurrence: None)
  Receive Date: 20130111
  Receipt Date: 20130111
  Transmission Date: 20140127
  Serious: Yes (Life-Threatening, Hospitalization, Disabling, Other)
  Sender: FDA-Public Use
  Company Number: None

PATIENT
  Age: 59 Year
  Sex: Male
  Weight: 136.08 kg

DRUGS (1)
  1. NIASPAN [Suspect]
     Indication: HYPERCHOLESTEROLAEMIA
     Dosage: 750 MG DAILY PO
     Route: 048
     Dates: start: 20110601, end: 20130103

REACTIONS (6)
  - Sleep apnoea syndrome [None]
  - Hypoxia [None]
  - Gait disturbance [None]
  - Asthenia [None]
  - Quality of life decreased [None]
  - Impaired work ability [None]
